FAERS Safety Report 9564918 (Version 2)
Quarter: 2013Q3

REPORT INFORMATION
  Report Type: Spontaneous
  Country: US (occurrence: US)
  Receive Date: 20130930
  Receipt Date: 20130930
  Transmission Date: 20140515
  Serious: Yes (Death, Hospitalization, Other)
  Sender: FDA-Public Use
  Company Number: US-JNJFOC-20130915056

PATIENT
  Sex: 0

DRUGS (1)
  1. DOXORUBICIN [Suspect]
     Indication: ACUTE LYMPHOCYTIC LEUKAEMIA
     Route: 042

REACTIONS (12)
  - Death [Fatal]
  - Ejection fraction decreased [Unknown]
  - Febrile neutropenia [Unknown]
  - Infection [Unknown]
  - Sepsis [Unknown]
  - Mucosal inflammation [Unknown]
  - Electrocardiogram abnormal [Unknown]
  - Mucosal inflammation [Unknown]
  - Mucosal inflammation [Unknown]
  - Neutrophil count abnormal [Recovered/Resolved]
  - Platelet count abnormal [Recovered/Resolved]
  - Off label use [Unknown]
